FAERS Safety Report 8405948 (Version 2)
Quarter: 2012Q4

REPORT INFORMATION
  Report Type: 
  Country: GB (occurrence: GB)
  Receive Date: 20120215
  Receipt Date: 20120929
  Transmission Date: 20130627
  Serious: Yes (Death, Hospitalization)
  Sender: FDA-Public Use
  Company Number: GB-ACCORD-012321

PATIENT
  Age: 36 Year
  Sex: Male

DRUGS (8)
  1. SIMVASTATIN [Suspect]
     Indication: DRUG USE FOR UNKNOWN INDICATION
     Route: 048
  2. SODIUM VALPROATE [Concomitant]
  3. ARIPIPRAZOLE [Suspect]
     Indication: SCHIZOPHRENIA
     Route: 048
  4. CLONAZEPAM [Concomitant]
  5. OMEPRAZOLE [Concomitant]
  6. CLOZAPINE [Suspect]
     Indication: SCHIZOPHRENIA
     Route: 048
     Dates: end: 20120109
  7. FOLIC ACID [Concomitant]
  8. WARFARIN [Concomitant]

REACTIONS (7)
  - Neuroleptic malignant syndrome [Fatal]
  - Circulatory collapse [Unknown]
  - Impaired renal function [Unknown]
  - Hepatic function abnormal [Unknown]
  - Generalised Peritonitis [Fatal]
  - Perforated transverse colon [Fatal]
  - Sepsis [Unknown]
